FAERS Safety Report 14655164 (Version 1)
Quarter: 2018Q1

REPORT INFORMATION
  Report Type: Spontaneous
  Country: US (occurrence: US)
  Receive Date: 20180319
  Receipt Date: 20180319
  Transmission Date: 20180509
  Serious: Yes (Other)
  Sender: FDA-Public Use
  Company Number: US-SA-2018SA078739

PATIENT
  Age: 21 Year
  Sex: Male
  Weight: 65 kg

DRUGS (1)
  1. LUMIZYME [Suspect]
     Active Substance: ALGLUCOSIDASE ALFA
     Route: 041
     Dates: start: 201411

REACTIONS (6)
  - Blood pressure increased [Recovering/Resolving]
  - Body temperature increased [Unknown]
  - Heart rate increased [Not Recovered/Not Resolved]
  - Chills [Not Recovered/Not Resolved]
  - Headache [Not Recovered/Not Resolved]
  - Device related infection [Unknown]

NARRATIVE: CASE EVENT DATE: 20180131
